FAERS Safety Report 16304136 (Version 1)
Quarter: 2019Q2

REPORT INFORMATION
  Report Type: Spontaneous
  Country: US (occurrence: US)
  Receive Date: 20190513
  Receipt Date: 20190513
  Transmission Date: 20190711
  Serious: No
  Sender: FDA-Public Use
  Company Number: US-MYLANLABS-2019M1041000

PATIENT
  Sex: Male

DRUGS (2)
  1. ANADROL-50 [Suspect]
     Active Substance: OXYMETHOLONE
     Indication: ANAEMIA
  2. ANADROL-50 [Suspect]
     Active Substance: OXYMETHOLONE
     Indication: ANDROGENS ABNORMAL
     Dosage: UNK
     Route: 048

REACTIONS (1)
  - Drug ineffective [Not Recovered/Not Resolved]
